FAERS Safety Report 4433243-1 (Version None)
Quarter: 2004Q3

REPORT INFORMATION
  Report Type: 
  Country: None (occurrence: None)
  Receive Date: 20040824
  Receipt Date: 20040818
  Transmission Date: 20050211
  Serious: Yes (Death, Hospitalization)
  Sender: FDA-Public Use
  Company Number: 04-08-1192

PATIENT
  Age: 73 Year
  Sex: Male

DRUGS (1)
  1. CLOZAPINE [Suspect]
     Indication: SCHIZOAFFECTIVE DISORDER
     Dosage: 100-300MG QD ORAL
     Route: 047
     Dates: start: 19990601, end: 20040701

REACTIONS (1)
  - FOREIGN BODY ASPIRATION [None]
